FAERS Safety Report 20758383 (Version 5)
Quarter: 2022Q2

REPORT INFORMATION
  Report Type: Spontaneous
  Country: US (occurrence: US)
  Receive Date: 20220427
  Receipt Date: 20220627
  Transmission Date: 20220720
  Serious: Yes (Hospitalization, Other)
  Sender: FDA-Public Use
  Company Number: US-BIOGEN-2022BI01116679

PATIENT
  Sex: Male
  Weight: 74.2 kg

DRUGS (13)
  1. ADUHELM [Suspect]
     Active Substance: ADUCANUMAB-AVWA
     Indication: Dementia Alzheimer^s type
     Dosage: INFUSION 1
     Route: 065
     Dates: start: 20210928
  2. ADUHELM [Suspect]
     Active Substance: ADUCANUMAB-AVWA
     Dosage: INFUSION 2
     Route: 065
     Dates: start: 2021
  3. ADUHELM [Suspect]
     Active Substance: ADUCANUMAB-AVWA
     Dosage: INFUSION 3
     Route: 065
     Dates: start: 20211202
  4. ADUHELM [Suspect]
     Active Substance: ADUCANUMAB-AVWA
     Dosage: INFUSION 4
     Route: 065
     Dates: start: 202201
  5. ADUHELM [Suspect]
     Active Substance: ADUCANUMAB-AVWA
     Dosage: INFUSION 5
     Route: 065
     Dates: start: 20220201
  6. ADUHELM [Suspect]
     Active Substance: ADUCANUMAB-AVWA
     Dosage: INFUSION 6
     Route: 065
     Dates: start: 202203
  7. ADUHELM [Suspect]
     Active Substance: ADUCANUMAB-AVWA
     Dosage: MAINTENANCE DOSE
     Route: 065
     Dates: start: 20220406
  8. PREDNISOLONE [Concomitant]
     Active Substance: PREDNISOLONE
     Indication: Product used for unknown indication
     Route: 065
  9. ATORVASTATIN CALCIUM [Concomitant]
     Active Substance: ATORVASTATIN CALCIUM
     Indication: Product used for unknown indication
     Route: 065
  10. TAMSULOSIN HYDROCHLORIDE [Concomitant]
     Active Substance: TAMSULOSIN HYDROCHLORIDE
     Indication: Product used for unknown indication
     Route: 065
  11. VITAMIN D3 [Concomitant]
     Active Substance: CHOLECALCIFEROL
     Indication: Product used for unknown indication
     Route: 065
  12. VITAMIN B12 [Concomitant]
     Active Substance: CYANOCOBALAMIN
     Indication: Product used for unknown indication
     Route: 065
  13. LOW DOSE ASPIRIN [Concomitant]
     Active Substance: ASPIRIN
     Indication: Product used for unknown indication
     Route: 065

REACTIONS (5)
  - Vasogenic cerebral oedema [Unknown]
  - Cerebral infarction [Unknown]
  - Intracranial aneurysm [Unknown]
  - Carotid arteriosclerosis [Unknown]
  - Sinusitis [Unknown]

NARRATIVE: CASE EVENT DATE: 20220101
